FAERS Safety Report 8906469 (Version 1)
Quarter: 2012Q4

REPORT INFORMATION
  Report Type: Spontaneous
  Country: US (occurrence: None)
  Receive Date: 20121113
  Receipt Date: 20121113
  Transmission Date: 20130627
  Serious: Yes (Other)
  Sender: FDA-Public Use
  Company Number: None

PATIENT
  Age: 29 Year
  Sex: Male
  Weight: 81.65 kg

DRUGS (2)
  1. VENLAFAXINE [Suspect]
     Indication: AUTISM
  2. VENLAFAXINE [Suspect]

REACTIONS (4)
  - Psychomotor hyperactivity [None]
  - Irritability [None]
  - Aggression [None]
  - Product substitution issue [None]
